FAERS Safety Report 6884564-4 (Version None)
Quarter: 2010Q3

REPORT INFORMATION
  Report Type: 
  Country: None (occurrence: None)
  Receive Date: 20100729
  Receipt Date: 20070419
  Transmission Date: 20110219
  Serious: Yes (Hospitalization, Other)
  Sender: FDA-Public Use
  Company Number: US-PFIZER INC-2007058519

PATIENT
  Sex: Female
  Weight: 90.7 kg

DRUGS (19)
  1. CELEBREX [Suspect]
     Indication: BACK PAIN
     Route: 048
     Dates: start: 19980101
  2. CELEBREX [Suspect]
     Indication: PAIN MANAGEMENT
  3. CELEBREX [Suspect]
     Indication: ARTHRITIS
  4. IBUPROFEN TABLETS [Concomitant]
  5. NAPROXEN [Concomitant]
  6. ACETYLSALICYLIC ACID SRT [Concomitant]
  7. VALDECOXIB [Concomitant]
  8. CODEINE [Concomitant]
  9. DARVOCET [Concomitant]
  10. DEMEROL [Concomitant]
  11. MORPHINE [Concomitant]
  12. OXYCONTIN [Concomitant]
  13. PERCOCET [Concomitant]
  14. ACETAMINOPHEN [Concomitant]
  15. TRAMADOL HYDROCHLORIDE [Concomitant]
  16. ROFECOXIB [Concomitant]
  17. PRILOSEC [Concomitant]
     Indication: GASTROOESOPHAGEAL REFLUX DISEASE
  18. WARFARIN [Concomitant]
     Indication: LUNG DISORDER
  19. NITROGLYCERIN [Concomitant]
     Indication: CHEST PAIN

REACTIONS (1)
  - MYOCARDIAL INFARCTION [None]
